FAERS Safety Report 7013284-0 (Version None)
Quarter: 2010Q3

REPORT INFORMATION
  Report Type: 
  Country: None (occurrence: None)
  Receive Date: 20100924
  Receipt Date: 20100917
  Transmission Date: 20110219
  Serious: Yes (Hospitalization, Other)
  Sender: FDA-Public Use
  Company Number: PHHO2010FR13222

PATIENT
  Sex: Male
  Weight: 72.6 kg

DRUGS (2)
  1. ZOLEDRONATE T29581+SOLINJ+BM [Suspect]
     Indication: BONE SARCOMA
     Dosage: 2 MG
     Route: 042
     Dates: start: 20100810
  2. METHOTREXATE [Concomitant]
     Dosage: 17G
     Dates: start: 20100805, end: 20100805

REACTIONS (2)
  - BLOOD CREATININE DECREASED [None]
  - HYPOCALCAEMIA [None]
